FAERS Safety Report 7150267-4 (Version None)
Quarter: 2010Q4

REPORT INFORMATION
  Report Type: 
  Country: None (occurrence: None)
  Receive Date: 20101210
  Receipt Date: 20101122
  Transmission Date: 20110411
  Serious: Yes (Other)
  Sender: FDA-Public Use
  Company Number: BE-B.I. PHARMACEUTICALS,INC./RIDGEFIELD-2010-DE-06865BY

PATIENT
  Age: 73 Year
  Sex: Female

DRUGS (5)
  1. KINZALMONO [Suspect]
     Indication: HYPERTENSION
     Dosage: 80 MG
     Route: 048
     Dates: start: 20101110, end: 20101114
  2. KINZALMONO [Suspect]
     Dosage: 40 MG
     Route: 048
     Dates: start: 20101115, end: 20101117
  3. KINZALMONO [Suspect]
     Dosage: 20 MG
     Route: 048
     Dates: start: 20101117
  4. NOVORAPID [Concomitant]
     Indication: TYPE 1 DIABETES MELLITUS
  5. SYMBICORT [Concomitant]
     Indication: ASTHMA

REACTIONS (2)
  - HYPERGLYCAEMIA [None]
  - PALPITATIONS [None]
